FAERS Safety Report 8522412-7 (Version None)
Quarter: 2012Q3

REPORT INFORMATION
  Report Type: 
  Country: None (occurrence: None)
  Receive Date: 20120719
  Receipt Date: 20120706
  Transmission Date: 20120928
  Serious: No
  Sender: FDA-Public Use
  Company Number: US-ASTRAZENECA-2012SE37330

PATIENT
  Age: 71 Year
  Sex: Male

DRUGS (1)
  1. CAPRELSA [Suspect]
     Indication: THYROID CANCER
     Route: 048

REACTIONS (6)
  - ABDOMINAL PAIN UPPER [None]
  - RASH [None]
  - DIARRHOEA [None]
  - DYSPNOEA [None]
  - COUGH [None]
  - MUSCULAR WEAKNESS [None]
